FAERS Safety Report 4681790-X (Version None)
Quarter: 2005Q2

REPORT INFORMATION
  Report Type: 
  Country: None (occurrence: None)
  Receive Date: 20050601
  Receipt Date: 20050516
  Transmission Date: 20051028
  Serious: Yes (Hospitalization)
  Sender: FDA-Public Use
  Company Number: USA050598195

PATIENT
  Age: 38 Year
  Sex: Female
  Weight: 117.9352 kg

DRUGS (5)
  1. HUMULIN R [Suspect]
  2. HUMULIN N [Suspect]
  3. HUMALOG [Suspect]
     Dates: start: 20030101
  4. LANTUS [Concomitant]
  5. AVANDIA [Concomitant]

REACTIONS (8)
  - BLOOD GLUCOSE DECREASED [None]
  - BLOOD GLUCOSE INCREASED [None]
  - INJECTION SITE MASS [None]
  - INJECTION SITE SCAR [None]
  - INSULIN RESISTANCE [None]
  - PANCREATIC DISORDER [None]
  - PHARMACEUTICAL PRODUCT COMPLAINT [None]
  - VOMITING [None]
